FAERS Safety Report 12970453 (Version 2)
Quarter: 2017Q2

REPORT INFORMATION
  Report Type: Spontaneous
  Country: JP (occurrence: JP)
  Receive Date: 20161123
  Receipt Date: 20170531
  Transmission Date: 20170830
  Serious: Yes (Other)
  Sender: FDA-Public Use
  Company Number: JP-PFIZER INC-2016540750

PATIENT
  Age: 30 Year
  Sex: Female

DRUGS (7)
  1. SALAZOPYRIN [Suspect]
     Active Substance: SULFASALAZINE
     Dosage: 1000 MG, 2X/DAY
     Route: 048
     Dates: start: 20130424, end: 20140115
  2. SALAZOPYRIN [Suspect]
     Active Substance: SULFASALAZINE
     Dosage: 1500 MG, 1X/DAY
     Route: 048
     Dates: start: 20160810
  3. SALAZOPYRIN [Suspect]
     Active Substance: SULFASALAZINE
     Dosage: 2000 MG, 2X/DAY
     Route: 048
     Dates: start: 20140416, end: 20150805
  4. SG /01737201/ [Concomitant]
     Active Substance: ACETAMINOPHEN\APRONALIDE\CAFFEINE\PROPYPHENAZONE
     Indication: HEADACHE
     Dosage: 1 G, AS NEEDED
     Route: 048
  5. SALAZOPYRIN [Suspect]
     Active Substance: SULFASALAZINE
     Indication: COLITIS ULCERATIVE
     Dosage: 1000 MG, 3X/DAY
     Route: 048
     Dates: start: 20130129, end: 20130129
  6. SALAZOPYRIN [Suspect]
     Active Substance: SULFASALAZINE
     Dosage: 1000 MG, 2X/DAY
     Route: 048
     Dates: start: 20150812, end: 20160224
  7. SALAZOPYRIN [Suspect]
     Active Substance: SULFASALAZINE
     Dosage: 1000MG AT MORNING, 500MG AT NOON, 1000MG AT EVENING
     Route: 048
     Dates: start: 20130227, end: 20130227

REACTIONS (2)
  - Haemorrhagic diathesis [Unknown]
  - Mouth haemorrhage [Unknown]
